FAERS Safety Report 7440509-X (Version None)
Quarter: 2011Q2

REPORT INFORMATION
  Report Type: 
  Country: None (occurrence: None)
  Receive Date: 20110427
  Receipt Date: 20110420
  Transmission Date: 20111010
  Serious: Yes (Death, Hospitalization)
  Sender: FDA-Public Use
  Company Number: A0710871A

PATIENT
  Age: 54 Year
  Sex: Female

DRUGS (7)
  1. AMIODARONE [Concomitant]
  2. GLUCOTROL XL [Concomitant]
  3. DILTIAZEM [Concomitant]
  4. ATENOLOL [Concomitant]
  5. AVANDIA [Suspect]
     Dosage: 8MG PER DAY
     Route: 048
     Dates: start: 20030716, end: 20050801
  6. FUROSEMIDE [Concomitant]
  7. ACCUPRIL [Concomitant]

REACTIONS (7)
  - METABOLIC ACIDOSIS [None]
  - CARDIAC FAILURE CONGESTIVE [None]
  - TRANSIENT ISCHAEMIC ATTACK [None]
  - RENAL FAILURE ACUTE [None]
  - OEDEMA [None]
  - ACUTE MYOCARDIAL INFARCTION [None]
  - HEPATIC FAILURE [None]
